FAERS Safety Report 25800357 (Version 1)
Quarter: 2025Q3

REPORT INFORMATION
  Report Type: Report from Study
  Country: CA (occurrence: CA)
  Receive Date: 20250915
  Receipt Date: 20250915
  Transmission Date: 20251020
  Serious: Yes (Hospitalization)
  Sender: ALEXION PHARMACEUTICALS
  Company Number: CA-AstraZeneca-CH-00947010A

PATIENT
  Age: 48 Year
  Sex: Female

DRUGS (4)
  1. SOLIRIS [Suspect]
     Active Substance: ECULIZUMAB
     Indication: Atypical haemolytic uraemic syndrome
     Dosage: 900 MILLIGRAM, QW (Q7 DAYS), DOSE1- 4
     Dates: start: 20230902
  2. SOLIRIS [Suspect]
     Active Substance: ECULIZUMAB
     Dates: start: 20230902, end: 20231011
  3. SOLIRIS [Suspect]
     Active Substance: ECULIZUMAB
     Dates: start: 20231026, end: 20240704
  4. ULTOMIRIS [4]
     Active Substance: RAVULIZUMAB-CWVZ
     Indication: Atypical haemolytic uraemic syndrome

REACTIONS (5)
  - Abdominal pain upper [Unknown]
  - Decreased appetite [Unknown]
  - Diarrhoea [Unknown]
  - Urinary retention [Unknown]
  - Feeding disorder [Unknown]

NARRATIVE: CASE EVENT DATE: 20250830
